FAERS Safety Report 20224378 (Version 2)
Quarter: 2022Q1

REPORT INFORMATION
  Report Type: Other
  Country: DE (occurrence: DE)
  Receive Date: 20211223
  Receipt Date: 20220111
  Transmission Date: 20220423
  Serious: Yes (Other)
  Sender: FDA-Public Use
  Company Number: None

PATIENT

DRUGS (5)
  1. IOHEXOL [Suspect]
     Active Substance: IOHEXOL
     Indication: Angiogram
     Dosage: 120 ML, SINGLE
     Route: 065
     Dates: start: 20210517, end: 20210517
  2. IOHEXOL [Suspect]
     Active Substance: IOHEXOL
     Indication: Product used for unknown indication
  3. IOHEXOL [Suspect]
     Active Substance: IOHEXOL
     Indication: Catheterisation cardiac
     Dosage: 60 ML, SINGLE
     Route: 065
     Dates: start: 20210312, end: 20210312
  4. IOHEXOL [Suspect]
     Active Substance: IOHEXOL
     Indication: Product used for unknown indication
  5. XARELTO [Concomitant]
     Active Substance: RIVAROXABAN
     Route: 065

REACTIONS (15)
  - Erectile dysfunction [Unknown]
  - Sexual dysfunction [Unknown]
  - Constipation [Unknown]
  - Listless [Unknown]
  - Sleep disorder [Unknown]
  - Irritable bowel syndrome [Unknown]
  - Decreased appetite [Unknown]
  - Odynophagia [Unknown]
  - Abdominal distension [Unknown]
  - Dyspepsia [Unknown]
  - Arthralgia [Unknown]
  - Asthma [Unknown]
  - Pain in extremity [Unknown]
  - Disturbance in attention [Unknown]
  - Dizziness [Unknown]

NARRATIVE: CASE EVENT DATE: 20210101
